FAERS Safety Report 10171191 (Version 2)
Quarter: 2014Q2

REPORT INFORMATION
  Report Type: Spontaneous
  Country: AU (occurrence: AU)
  Receive Date: 20140514
  Receipt Date: 20140516
  Transmission Date: 20141212
  Serious: Yes (Hospitalization)
  Sender: FDA-Public Use
  Company Number: AU-ABBVIE-14P-008-1237009-00

PATIENT
  Sex: Male

DRUGS (1)
  1. EPILIM [Suspect]
     Indication: EPILEPSY
     Route: 048

REACTIONS (3)
  - Aphasia [Recovered/Resolved]
  - Convulsion [Recovered/Resolved]
  - Drug administration error [Unknown]
